FAERS Safety Report 9283741 (Version 1)
Quarter: 2013Q2

REPORT INFORMATION
  Report Type: Spontaneous
  Country: US (occurrence: None)
  Receive Date: 20130508
  Receipt Date: 20130508
  Transmission Date: 20140414
  Serious: Yes (Death)
  Sender: FDA-Public Use
  Company Number: UTC-032117

PATIENT
  Age: 62 Year
  Sex: Female
  Weight: 67.3 kg

DRUGS (3)
  1. TYVASO (6 MICROGRAM, AEROSOL FOR INHALATION) (TREPROSTINIL SODIUM) [Suspect]
     Indication: PULMONARY ARTERIAL HYPERTENSION
     Dosage: 18-54 MICROGRAMS, INHALATION
     Route: 055
     Dates: start: 20121101
  2. VIAGRA(SILDENAFIL) [Concomitant]
  3. LETAIRIS(AMBRISENTAN) [Concomitant]

REACTIONS (1)
  - Death [None]
